FAERS Safety Report 22030135 (Version 3)
Quarter: 2023Q1

REPORT INFORMATION
  Report Type: Report from Study
  Country: CN (occurrence: CN)
  Receive Date: 20230223
  Receipt Date: 20230324
  Transmission Date: 20230417
  Serious: Yes (Other)
  Sender: FDA-Public Use
  Company Number: CN-FOSUNKITE-FOSUNKITE-20230146

PATIENT
  Age: 33 Year
  Sex: Female

DRUGS (7)
  1. AXICABTAGENE CILOLEUCEL [Suspect]
     Active Substance: AXICABTAGENE CILOLEUCEL
     Indication: Non-Hodgkin^s lymphoma
     Dosage: 1.2?10^8 CELLS (NUMBER OF CAR-T CELLS)
     Route: 065
     Dates: start: 20230117, end: 20230117
  2. FLUDARABINE PHOSPHATE [Suspect]
     Active Substance: FLUDARABINE PHOSPHATE
     Indication: Lymphodepletion
     Dosage: 46.2 MG
     Route: 041
     Dates: start: 20230112, end: 20230114
  3. CYCLOPHOSPHAMIDE [Suspect]
     Active Substance: CYCLOPHOSPHAMIDE
     Indication: Lymphodepletion
     Dosage: 770 MG
     Route: 041
     Dates: start: 20230112, end: 20230114
  4. SELINEXOR [Concomitant]
     Active Substance: SELINEXOR
     Dosage: TREATMENT CYCLE 1
     Route: 048
     Dates: start: 202211
  5. VENETOCLAX [Concomitant]
     Active Substance: VENETOCLAX
     Dosage: TREATMENT CYCLE 1
     Route: 048
     Dates: start: 20221115
  6. OXALIPLATIN [Concomitant]
     Active Substance: OXALIPLATIN
     Dosage: 166 MG, TREATMENT CYCLE 1
     Route: 042
     Dates: start: 20221116
  7. GEMCITABINE [Concomitant]
     Active Substance: GEMCITABINE
     Dosage: 1.7 G, TREATMENT CYCLE 1
     Route: 042

REACTIONS (71)
  - Escherichia infection [Not Recovered/Not Resolved]
  - Small intestinal obstruction [Not Recovered/Not Resolved]
  - Ascites [Not Recovered/Not Resolved]
  - Loss of consciousness [Recovered/Resolved]
  - Hypokalaemia [Recovered/Resolved]
  - Pneumonia [Not Recovered/Not Resolved]
  - Hypoxia [Not Recovered/Not Resolved]
  - Cytokine release syndrome [Not Recovered/Not Resolved]
  - White blood cell count decreased [Not Recovered/Not Resolved]
  - Anaemia [Not Recovered/Not Resolved]
  - Hypoalbuminaemia [Not Recovered/Not Resolved]
  - Aspartate aminotransferase increased [Recovered/Resolved]
  - Alanine aminotransferase increased [Recovered/Resolved]
  - Blood alkaline phosphatase increased [Not Recovered/Not Resolved]
  - Hypomagnesaemia [Not Recovered/Not Resolved]
  - Hypophosphataemia [Recovered/Resolved]
  - C-reactive protein increased [Not Recovered/Not Resolved]
  - Neutrophil count decreased [Not Recovered/Not Resolved]
  - Lymphocyte count decreased [Not Recovered/Not Resolved]
  - Abdominal pain lower [Not Recovered/Not Resolved]
  - Skin lesion [Recovered/Resolved]
  - Skin disorder [Recovered/Resolved]
  - Skin disorder [Recovered/Resolved]
  - Dizziness [Not Recovered/Not Resolved]
  - Oral herpes [Recovered/Resolved]
  - Oral herpes [Not Recovered/Not Resolved]
  - SARS-CoV-2 test positive [Not Recovered/Not Resolved]
  - Localised oedema [Not Recovered/Not Resolved]
  - Chest discomfort [Not Recovered/Not Resolved]
  - Asthenia [Not Recovered/Not Resolved]
  - Asthenia [Recovered/Resolved]
  - Face oedema [Not Recovered/Not Resolved]
  - Oedema peripheral [Recovered/Resolved]
  - Abdominal distension [Not Recovered/Not Resolved]
  - Abdominal pain [Not Recovered/Not Resolved]
  - Skin lesion [Not Recovered/Not Resolved]
  - Skin lesion [Not Recovered/Not Resolved]
  - Oedema peripheral [Recovered/Resolved]
  - Epistaxis [Recovered/Resolved]
  - Non-cardiac chest pain [Not Recovered/Not Resolved]
  - Vulvovaginal pain [Not Recovered/Not Resolved]
  - Vulvovaginal erythema [Not Recovered/Not Resolved]
  - Vulvovaginal swelling [Not Recovered/Not Resolved]
  - Blood alkaline phosphatase increased [Not Recovered/Not Resolved]
  - Skin injury [Recovered/Resolved]
  - COVID-19 [Not Recovered/Not Resolved]
  - Skin injury [Not Recovered/Not Resolved]
  - Hypocalcaemia [Recovered/Resolved]
  - Pleural effusion [Not Recovered/Not Resolved]
  - Vomiting [Recovered/Resolved]
  - Decreased appetite [Not Recovered/Not Resolved]
  - Nausea [Recovered/Resolved]
  - Hypertension [Recovered/Resolved]
  - Heart rate increased [Not Recovered/Not Resolved]
  - Skin injury [Recovered/Resolved]
  - Skin injury [Recovered/Resolved]
  - Malnutrition [Not Recovered/Not Resolved]
  - Malnutrition [Not Recovered/Not Resolved]
  - Malnutrition [Not Recovered/Not Resolved]
  - Petechiae [Not Recovered/Not Resolved]
  - Petechiae [Not Recovered/Not Resolved]
  - Vulval oedema [Recovered/Resolved]
  - Listless [Not Recovered/Not Resolved]
  - Pelvic fluid collection [Not Recovered/Not Resolved]
  - Muscular weakness [Not Recovered/Not Resolved]
  - Skin injury [Recovered/Resolved]
  - Bacterial infection [Not Recovered/Not Resolved]
  - Generalised oedema [Not Recovered/Not Resolved]
  - Pain [Not Recovered/Not Resolved]
  - Skin injury [Not Recovered/Not Resolved]
  - Platelet count decreased [Not Recovered/Not Resolved]

NARRATIVE: CASE EVENT DATE: 20230117
